FAERS Safety Report 19108389 (Version 1)
Quarter: 2021Q2

REPORT INFORMATION
  Report Type: Spontaneous
  Country: US (occurrence: US)
  Receive Date: 20210408
  Receipt Date: 20210408
  Transmission Date: 20210717
  Serious: No
  Sender: FDA-Public Use
  Company Number: None

PATIENT
  Age: 57 Year
  Sex: Male
  Weight: 81.6 kg

DRUGS (1)
  1. CASIRIVIMAB AND IMDEVIMAB [Suspect]
     Active Substance: CASIRIVIMAB\IMDEVIMAB
     Indication: COVID-19
     Dosage: ?          OTHER FREQUENCY:ONCE;?
     Route: 041
     Dates: start: 20210402, end: 20210402

REACTIONS (9)
  - Pyrexia [None]
  - Chills [None]
  - Blood pressure increased [None]
  - Vomiting [None]
  - Platelet count decreased [None]
  - Electrocardiogram T wave abnormal [None]
  - Post procedural complication [None]
  - Anxiety [None]
  - Pneumonia [None]

NARRATIVE: CASE EVENT DATE: 20210402
